FAERS Safety Report 25246048 (Version 2)
Quarter: 2025Q3

REPORT INFORMATION
  Report Type: Report from Study
  Country: US (occurrence: US)
  Receive Date: 20250428
  Receipt Date: 20250915
  Transmission Date: 20251020
  Serious: No
  Sender: TRAVERE THERAPEUTICS
  Company Number: US-TRAVERE-2025TVT00325

PATIENT
  Age: 36 Year
  Sex: Female

DRUGS (2)
  1. FILSPARI [Suspect]
     Active Substance: SPARSENTAN
     Indication: IgA nephropathy
     Route: 048
     Dates: start: 20250216
  2. ADDERALL [Concomitant]
     Active Substance: AMPHETAMINE ASPARTATE\AMPHETAMINE SULFATE\DEXTROAMPHETAMINE SACCHARATE\DEXTROAMPHETAMINE SULFATE

REACTIONS (9)
  - Urine protein/creatinine ratio increased [Unknown]
  - Blood phosphorus decreased [Unknown]
  - Mean cell haemoglobin decreased [Unknown]
  - Mean cell haemoglobin concentration decreased [Unknown]
  - White blood cells urine positive [Unknown]
  - Blood urine [Unknown]
  - Protein urine present [Unknown]
  - Urine abnormality [Recovering/Resolving]
  - Energy increased [Unknown]

NARRATIVE: CASE EVENT DATE: 20250416
